FAERS Safety Report 5192189-4 (Version None)
Quarter: 2006Q4

REPORT INFORMATION
  Report Type: 
  Country: None (occurrence: None)
  Receive Date: 20061227
  Receipt Date: 20061211
  Transmission Date: 20070319
  Serious: Yes (Hospitalization)
  Sender: FDA-Public Use
  Company Number: 2006AP05976

PATIENT
  Age: 76 Year
  Sex: Female

DRUGS (8)
  1. TENORMIN [Suspect]
     Indication: HYPERTENSION
     Route: 048
     Dates: start: 20061109
  2. TERNELIN [Suspect]
     Route: 048
     Dates: start: 20061006, end: 20061215
  3. MEVALOTIN [Concomitant]
     Route: 048
  4. HALCION [Concomitant]
     Route: 048
  5. OPALMON [Concomitant]
     Route: 048
  6. LOXONIN [Concomitant]
     Route: 048
  7. BONALON [Concomitant]
     Route: 048
  8. KELNAC [Concomitant]
     Route: 048

REACTIONS (1)
  - HEPATIC FUNCTION ABNORMAL [None]
